FAERS Safety Report 24886816 (Version 3)
Quarter: 2025Q1

REPORT INFORMATION
  Report Type: Spontaneous
  Country: US (occurrence: US)
  Receive Date: 20250126
  Receipt Date: 20250222
  Transmission Date: 20250409
  Serious: No
  Sender: SANOFI AVENTIS
  Company Number: US-SA-2025SA020798

PATIENT
  Age: 56 Year
  Sex: Male
  Weight: 67.59 kg

DRUGS (26)
  1. DUPIXENT [Suspect]
     Active Substance: DUPILUMAB
     Indication: Eosinophilic oesophagitis
     Dosage: 300 MG, QW
     Route: 058
     Dates: start: 20250106
  2. ZYRTEC [Concomitant]
     Active Substance: CETIRIZINE HYDROCHLORIDE
  3. MINOXIDIL [Concomitant]
     Active Substance: MINOXIDIL
     Dosage: 0.5 DF, QD
     Route: 048
  4. VALTREX [Concomitant]
     Active Substance: VALACYCLOVIR HYDROCHLORIDE
  5. VITAMIN D3 [Concomitant]
     Active Substance: CHOLECALCIFEROL
  6. OMEPRAZOLE [Concomitant]
     Active Substance: OMEPRAZOLE
     Indication: Gastrooesophageal reflux disease
     Dosage: 1 DF, QD
     Route: 048
  7. TESTOSTERONE CYPIONATE [Concomitant]
     Active Substance: TESTOSTERONE CYPIONATE
     Dosage: 0.5 ML, QW
     Route: 030
  8. ALPRAZOLAM [Concomitant]
     Active Substance: ALPRAZOLAM
     Dosage: 1 DF, QD (AT BEDTIME)
     Route: 048
  9. CICLOPIROX [Concomitant]
     Active Substance: CICLOPIROX
     Dosage: UNK UNK, QW
  10. DUTASTERIDE [Concomitant]
     Active Substance: DUTASTERIDE
     Dosage: 1 DF, QD (DAILY)
  11. FLUOCINONIDE [Concomitant]
     Active Substance: FLUOCINONIDE
     Dosage: UNK UNK, BID
  12. JUBLIA [Concomitant]
     Active Substance: EFINACONAZOLE
     Dosage: UNK UNK, QD
  13. TADALAFIL [Concomitant]
     Active Substance: TADALAFIL
     Route: 048
  14. TRETINOIN [Concomitant]
     Active Substance: TRETINOIN
  15. VALACYCLOVIR HYDROCHLORIDE [Concomitant]
     Active Substance: VALACYCLOVIR HYDROCHLORIDE
     Dosage: 1 DF, QD
     Route: 048
  16. XYOSTED [Concomitant]
     Active Substance: TESTOSTERONE ENANTHATE
     Dosage: 100 MG, QW
     Route: 058
  17. ZOLPIDEM TARTRATE [Concomitant]
     Active Substance: ZOLPIDEM TARTRATE
     Indication: Insomnia
     Dosage: 1 DF, QD (AT BEDTIME)
     Route: 048
  18. XIIDRA [Concomitant]
     Active Substance: LIFITEGRAST
     Indication: Dry eye
     Dosage: UNK UNK, BID
     Route: 047
  19. SULFAMETHOXAZOLE\TRIMETHOPRIM [Concomitant]
     Active Substance: SULFAMETHOXAZOLE\TRIMETHOPRIM
     Dosage: 1 DF, BID
     Route: 048
  20. SUCRALFATE [Concomitant]
     Active Substance: SUCRALFATE
  21. SUCRALFATE [Concomitant]
     Active Substance: SUCRALFATE
  22. IBUPROFEN [Concomitant]
     Active Substance: IBUPROFEN
     Indication: Pain
  23. ACETAMINOPHEN\HYDROCODONE [Concomitant]
     Active Substance: ACETAMINOPHEN\HYDROCODONE
     Indication: Pain
  24. HYDROXYZINE PAMOATE [Concomitant]
     Active Substance: HYDROXYZINE PAMOATE
     Indication: Pruritus
     Dosage: 1 DF, QID
  25. PATADAY ONCE DAILY RELIEF [Concomitant]
     Active Substance: OLOPATADINE HYDROCHLORIDE
  26. PROCTOZONE HC [Concomitant]
     Active Substance: HYDROCORTISONE
     Route: 054

REACTIONS (5)
  - Conjunctivitis [Recovering/Resolving]
  - Ocular hyperaemia [Recovering/Resolving]
  - Eyelid margin crusting [Recovering/Resolving]
  - Eye pruritus [Recovering/Resolving]
  - Eosinophilic oesophagitis [Unknown]

NARRATIVE: CASE EVENT DATE: 20250101
